FAERS Safety Report 4336406-9 (Version None)
Quarter: 2004Q2

REPORT INFORMATION
  Report Type: 
  Country: None (occurrence: None)
  Receive Date: 20040407
  Receipt Date: 20040326
  Transmission Date: 20050107
  Serious: Yes (Other)
  Sender: FDA-Public Use
  Company Number: US-JNJFOC-20031006269

PATIENT
  Age: 56 Year
  Sex: Female
  Weight: 81.6475 kg

DRUGS (13)
  1. REMICADE [Suspect]
     Indication: RHEUMATOID ARTHRITIS
     Dosage: 300MG, INTRAVENOUS
     Route: 042
     Dates: start: 20021204, end: 20021204
  2. REMICADE [Suspect]
     Dosage: 1 IN 1 DAY, INTRAVENOUS
     Route: 042
     Dates: start: 20030905
  3. REMICADE [Suspect]
     Dosage: 300 MG, INTRAVENOUS
     Route: 042
     Dates: start: 20021009, end: 20021009
  4. REMICADE [Suspect]
     Dosage: 300 MG, INTRAVENOUS
     Route: 042
     Dates: start: 20030129, end: 20030129
  5. REMICADE [Suspect]
     Dosage: 300 MG, INTRAVENOUS
     Route: 042
     Dates: start: 20030319, end: 20030319
  6. REMICADE [Suspect]
     Dosage: 300 MG, INTRAVENOUS
     Route: 042
     Dates: start: 20030521, end: 20030521
  7. REMICADE [Suspect]
     Dosage: 300 MG, INTRAVENOUS
     Route: 042
     Dates: start: 20030716, end: 20030716
  8. REMICADE [Suspect]
     Dosage: 300 MG, INTRAVENOUS
     Route: 042
     Dates: start: 20030910, end: 20030910
  9. CELEBREX [Concomitant]
  10. PREDNISONE [Concomitant]
  11. METHOTREXATE [Concomitant]
  12. SOLU-MEDROL [Concomitant]
  13. TYLENOL [Concomitant]

REACTIONS (7)
  - COUGH [None]
  - FATIGUE [None]
  - FLUSHING [None]
  - LUNG SQUAMOUS CELL CARCINOMA STAGE IV [None]
  - LYMPHADENOPATHY [None]
  - PNEUMOTHORAX [None]
  - SYSTEMIC LUPUS ERYTHEMATOSUS [None]
